FAERS Safety Report 4433271-6 (Version None)
Quarter: 2004Q3

REPORT INFORMATION
  Report Type: 
  Country: None (occurrence: None)
  Receive Date: 20040824
  Receipt Date: 20040811
  Transmission Date: 20050211
  Serious: Yes (Death, Hospitalization)
  Sender: FDA-Public Use
  Company Number: US-JNJFOC-20040506345

PATIENT
  Age: 67 Year
  Sex: Female

DRUGS (14)
  1. REMICADE [Suspect]
     Indication: COLITIS ULCERATIVE
     Dosage: 5 MG/KG, 1 IN 1 DAY, INTRAVENOUS
     Route: 042
     Dates: start: 20031209
  2. REMICADE [Suspect]
     Indication: COLITIS ULCERATIVE
     Dosage: 5 MG/KG, 1 IN 1 DAY, INTRAVENOUS
     Route: 042
     Dates: start: 20031223
  3. REMICADE [Suspect]
     Indication: COLITIS ULCERATIVE
     Dosage: 5 MG/KG, 1 IN 1 DAY, INTRAVENOUS
     Route: 042
     Dates: start: 20040120
  4. REMICADE [Suspect]
     Indication: COLITIS ULCERATIVE
     Dosage: 5 MG/KG, 1 IN 1 DAY, INTRAVENOUS
     Route: 042
     Dates: start: 20040316
  5. METHOTREXATE SODIUM [Suspect]
     Indication: COLITIS ULCERATIVE
     Dosage: 2.5 MG
  6. PREVACID [Concomitant]
  7. FOLIC ACID [Concomitant]
  8. VITAMIN E [Concomitant]
  9. TAMBOCOR [Concomitant]
  10. LOPRESSOR [Concomitant]
  11. HYDROCORISONE (HYDROCORTISONE) [Concomitant]
  12. CALCIUM (CALCIUM) [Concomitant]
  13. VITAMIN D [Concomitant]
  14. PHYTONADIONE [Concomitant]

REACTIONS (18)
  - ATRIAL FIBRILLATION [None]
  - DIARRHOEA [None]
  - DIFFUSE ALVEOLAR DAMAGE [None]
  - FREQUENT BOWEL MOVEMENTS [None]
  - GENERAL PHYSICAL HEALTH DETERIORATION [None]
  - HAEMATOCHEZIA [None]
  - HAEMOGLOBIN DECREASED [None]
  - HYPOTENSION [None]
  - HYPOXIA [None]
  - LUNG INFILTRATION [None]
  - OXYGEN SATURATION DECREASED [None]
  - PALLOR [None]
  - PCO2 DECREASED [None]
  - PNEUMONITIS [None]
  - PNEUMOTHORAX [None]
  - PULMONARY FIBROSIS [None]
  - PULMONARY OEDEMA [None]
  - STEATORRHOEA [None]
